FAERS Safety Report 5317362-3 (Version None)
Quarter: 2007Q2

REPORT INFORMATION
  Report Type: 
  Country: None (occurrence: None)
  Receive Date: 20070504
  Receipt Date: 20070501
  Transmission Date: 20071010
  Serious: Yes (Other)
  Sender: FDA-Public Use
  Company Number: US-MERCK-0704USA05051

PATIENT
  Sex: Male

DRUGS (5)
  1. VYTORIN [Suspect]
     Indication: BLOOD CHOLESTEROL INCREASED
     Route: 048
     Dates: start: 20050501, end: 20050510
  2. VYTORIN [Suspect]
     Route: 048
     Dates: start: 20050511, end: 20050523
  3. FLOMAX (MORNIFLUMATE) [Concomitant]
     Route: 065
  4. AVANDAMET [Concomitant]
     Route: 065
  5. LOTREL [Concomitant]
     Route: 065

REACTIONS (1)
  - BLINDNESS [None]
